FAERS Safety Report 18281998 (Version 1)
Quarter: 2020Q3

REPORT INFORMATION
  Report Type: Spontaneous
  Country: US (occurrence: US)
  Receive Date: 20200916
  Receipt Date: 20200916
  Transmission Date: 20201103
  Serious: Yes (Other)
  Sender: FDA-Public Use
  Company Number: None

PATIENT
  Sex: Female

DRUGS (29)
  1. AMOX/K CLAV [Concomitant]
     Active Substance: AMOXICILLIN\CLAVULANATE POTASSIUM
  2. HYDROMORPHON [Concomitant]
     Active Substance: HYDROMORPHONE
  3. LORAZEPAM. [Concomitant]
     Active Substance: LORAZEPAM
  4. AUG BETAMET [Concomitant]
  5. FLUVOXAMINE [Concomitant]
     Active Substance: FLUVOXAMINE
  6. METRONIDAZOL [Concomitant]
     Active Substance: METRONIDAZOLE
  7. PREDNISONE. [Concomitant]
     Active Substance: PREDNISONE
  8. TRAZODONE [Concomitant]
     Active Substance: TRAZODONE HYDROCHLORIDE
  9. TRIAMCINOLON CRE [Concomitant]
  10. PROCHLORPER [Concomitant]
  11. XOLAIR [Suspect]
     Active Substance: OMALIZUMAB
     Indication: IDIOPATHIC URTICARIA
     Dosage: ?          OTHER FREQUENCY:QM;?
     Route: 058
     Dates: start: 20200805
  12. ARMOUR THYRO [Concomitant]
  13. HYDROCO/APAP [Concomitant]
     Active Substance: ACETAMINOPHEN\HYDROCODONE
  14. HYDROXYZ HCL [Concomitant]
     Active Substance: HYDROXYZINE HYDROCHLORIDE
  15. ALPRAZOLAM. [Concomitant]
     Active Substance: ALPRAZOLAM
  16. DOXYCYCL HYC [Concomitant]
  17. METHYLPRED [Concomitant]
     Active Substance: METHYLPREDNISOLONE
  18. QUETIAPINE. [Concomitant]
     Active Substance: QUETIAPINE
  19. ZOLPIDEM [Concomitant]
     Active Substance: ZOLPIDEM TARTRATE
  20. APAP/CODEINE [Concomitant]
     Active Substance: ACETAMINOPHEN\CODEINE PHOSPHATE
  21. DEXAMETHASON [Concomitant]
     Active Substance: DEXAMETHASONE
  22. MONTELUKAST [Concomitant]
     Active Substance: MONTELUKAST SODIUM
  23. ONDANSETRON [Concomitant]
     Active Substance: ONDANSETRON
  24. CLONAZEPAM. [Concomitant]
     Active Substance: CLONAZEPAM
  25. NAPROXEN. [Concomitant]
     Active Substance: NAPROXEN
  26. NITRO?BID OIN [Concomitant]
  27. CIPROFLOXACIN. [Concomitant]
     Active Substance: CIPROFLOXACIN
  28. PIMECROLIMUS CRE [Concomitant]
  29. VENLAFAXINE [Concomitant]
     Active Substance: VENLAFAXINE HYDROCHLORIDE

REACTIONS (1)
  - Unevaluable event [None]
